FAERS Safety Report 12867549 (Version 1)
Quarter: 2016Q4

REPORT INFORMATION
  Report Type: Report from Study
  Country: US (occurrence: US)
  Receive Date: 20161020
  Receipt Date: 20161020
  Transmission Date: 20170207
  Serious: Yes (Death, Other)
  Sender: FDA-Public Use
  Company Number: US-GILEAD-2016-0239299

PATIENT
  Age: 66 Year
  Sex: Female

DRUGS (11)
  1. AMBRISENTAN [Suspect]
     Active Substance: AMBRISENTAN
     Indication: PULMONARY ARTERIAL HYPERTENSION
     Dosage: 10 MG, QD
     Route: 065
     Dates: start: 20150807, end: 20161004
  2. MIDODRINE [Concomitant]
     Active Substance: MIDODRINE
  3. WARFARIN [Concomitant]
     Active Substance: WARFARIN
  4. CLONAZEPAM. [Concomitant]
     Active Substance: CLONAZEPAM
  5. POTASSIUM [Concomitant]
     Active Substance: POTASSIUM
  6. LORAZEPAM. [Concomitant]
     Active Substance: LORAZEPAM
  7. LOVASTATIN. [Concomitant]
     Active Substance: LOVASTATIN
  8. METOLAZONE. [Concomitant]
     Active Substance: METOLAZONE
  9. SPIRONOLACTONE. [Concomitant]
     Active Substance: SPIRONOLACTONE
  10. DIPYRIDAMOLE. [Concomitant]
     Active Substance: DIPYRIDAMOLE
  11. ORENITRAM [Concomitant]
     Active Substance: TREPROSTINIL

REACTIONS (1)
  - Death [Fatal]

NARRATIVE: CASE EVENT DATE: 20161004
